FAERS Safety Report 9137215 (Version 1)
Quarter: 2013Q1

REPORT INFORMATION
  Report Type: Spontaneous
  Country: US (occurrence: US)
  Receive Date: 20130219
  Receipt Date: 20130219
  Transmission Date: 20140127
  Serious: No
  Sender: FDA-Public Use
  Company Number: US-BRISTOL-MYERS SQUIBB COMPANY-17141904

PATIENT
  Age: 77 Year
  Sex: Female

DRUGS (1)
  1. ORENCIA [Suspect]
     Indication: RHEUMATOID ARTHRITIS
     Dosage: LST INF 15NV2012?1ST INF:2V 500MG,2ND 750MG. ?STRENGTH:250MG?FORM:INJ,POWDER,LYOPHILIZED
     Route: 042

REACTIONS (3)
  - Weight fluctuation [Unknown]
  - Cyst [Unknown]
  - Drug ineffective [Unknown]
